FAERS Safety Report 22620606 (Version 2)
Quarter: 2024Q3

REPORT INFORMATION
  Report Type: Spontaneous
  Country: DE (occurrence: DE)
  Receive Date: 20230620
  Receipt Date: 20240723
  Transmission Date: 20241016
  Serious: Yes (Life-Threatening, Hospitalization, Other)
  Sender: FRESENIUS KABI
  Company Number: DE-SA-2023SA173164

PATIENT
  Sex: Male

DRUGS (68)
  1. ACETAMINOPHEN [Suspect]
     Active Substance: ACETAMINOPHEN
     Indication: Product used for unknown indication
     Dosage: DOSE DESCRIPTION : 1 G?ROUTE: INTRAVENOUS (NOT OTHERWISE SPECIFIED)
  2. VENETOCLAX [Suspect]
     Active Substance: VENETOCLAX
     Indication: Acute myeloid leukaemia
     Dosage: DOSE DESCRIPTION : 400 MG, QD?FORM: INJECTION
     Route: 048
     Dates: end: 20230202
  3. VENETOCLAX [Suspect]
     Active Substance: VENETOCLAX
     Dosage: DOSE DESCRIPTION : 70 MG, QD?FORM: INJECTION
     Route: 048
     Dates: end: 20230123
  4. VENETOCLAX [Suspect]
     Active Substance: VENETOCLAX
     Dosage: DOSE DESCRIPTION : 200 MG, QD?FORM: INJECTION
     Route: 048
  5. VENETOCLAX [Suspect]
     Active Substance: VENETOCLAX
     Dosage: FORM: TABLET
     Route: 048
     Dates: end: 20230712
  6. VENETOCLAX [Suspect]
     Active Substance: VENETOCLAX
     Dosage: DOSE DESCRIPTION : 400 MG, QD?FORM: INJECTION
     Route: 048
     Dates: end: 20230125
  7. VENETOCLAX [Suspect]
     Active Substance: VENETOCLAX
     Dosage: FORM: TABLET
     Route: 048
     Dates: end: 20230326
  8. VENETOCLAX [Suspect]
     Active Substance: VENETOCLAX
     Dosage: FORM: TABLET
     Route: 048
     Dates: end: 20230612
  9. VENETOCLAX [Suspect]
     Active Substance: VENETOCLAX
     Dosage: FORM: TABLET
     Route: 048
     Dates: end: 20230508
  10. VENETOCLAX [Suspect]
     Active Substance: VENETOCLAX
     Dosage: FORM: TABLET
     Route: 048
     Dates: end: 20230817
  11. VENETOCLAX [Suspect]
     Active Substance: VENETOCLAX
     Dosage: FORM: TABLET
     Route: 048
     Dates: end: 20230917
  12. VENETOCLAX [Suspect]
     Active Substance: VENETOCLAX
     Dosage: FORM: TABLET
     Route: 048
     Dates: start: 20230925
  13. VENETOCLAX [Suspect]
     Active Substance: VENETOCLAX
     Dosage: 70 MG, QD?ROA-20053000?PFT-22010?FORM: INJECTION
     Route: 048
     Dates: start: 20221230, end: 20230123
  14. VENETOCLAX [Suspect]
     Active Substance: VENETOCLAX
     Dosage: 400 MG, QD?PFT-22010?ROA-20053000?FORM: INJECTION
     Route: 048
     Dates: start: 20230126, end: 20230202
  15. VENETOCLAX [Suspect]
     Active Substance: VENETOCLAX
     Dosage: 400 MG, QD?PFT-22010?ROA-20053000?FORM: INJECTION
     Route: 048
     Dates: start: 20230124, end: 20230125
  16. VENETOCLAX [Suspect]
     Active Substance: VENETOCLAX
     Dosage: 200 MG, QD?PFT-22010?ROA-20053000?FORM: INJECTION
     Route: 048
     Dates: start: 20230203
  17. AZACITIDINE [Suspect]
     Active Substance: AZACITIDINE
     Indication: Acute myeloid leukaemia
     Dosage: DOSE DESCRIPTION : 140 MG?FORM: INJECTION
     Route: 058
     Dates: end: 20230105
  18. AZACITIDINE [Suspect]
     Active Substance: AZACITIDINE
     Dosage: FORM: INJECTION
     Route: 048
     Dates: start: 20230926, end: 20230929
  19. AZACITIDINE [Suspect]
     Active Substance: AZACITIDINE
     Dosage: DOSE DESCRIPTION : 140 MG?FORM: INJECTION
     Route: 058
     Dates: end: 20230104
  20. AZACITIDINE [Suspect]
     Active Substance: AZACITIDINE
     Dosage: DOSE DESCRIPTION : 140 MG?FORM: INJECTION
     Route: 058
     Dates: end: 20230102
  21. AZACITIDINE [Suspect]
     Active Substance: AZACITIDINE
     Dosage: DOSE DESCRIPTION : 140 MG?FORM: INJECTION
     Route: 058
     Dates: end: 20221230
  22. AZACITIDINE [Suspect]
     Active Substance: AZACITIDINE
     Dosage: DOSE DESCRIPTION : 137 MG?FORM: INJECTION
     Route: 058
     Dates: end: 20230130
  23. AZACITIDINE [Suspect]
     Active Substance: AZACITIDINE
     Dosage: FORM: INJECTION
     Route: 048
     Dates: start: 20230925, end: 20230925
  24. AZACITIDINE [Suspect]
     Active Substance: AZACITIDINE
     Dosage: DOSE DESCRIPTION : 137 MG?FORM: INJECTION
     Route: 058
     Dates: end: 20230128
  25. AZACITIDINE [Suspect]
     Active Substance: AZACITIDINE
     Dosage: FORM: INJECTION
     Route: 048
     Dates: start: 20231001, end: 20231002
  26. AZACITIDINE [Suspect]
     Active Substance: AZACITIDINE
     Dosage: FORM: INJECTION
     Route: 048
     Dates: end: 20230519
  27. AZACITIDINE [Suspect]
     Active Substance: AZACITIDINE
     Dosage: FORM: INJECTION
     Route: 048
     Dates: start: 20230821, end: 20230825
  28. AZACITIDINE [Suspect]
     Active Substance: AZACITIDINE
     Dosage: DOSE DESCRIPTION : 137 MG?FORM: INJECTION
     Route: 058
     Dates: end: 20230129
  29. AZACITIDINE [Suspect]
     Active Substance: AZACITIDINE
     Dosage: DOSE DESCRIPTION : 140 MG?FORM: INJECTION
     Route: 058
     Dates: end: 20221231
  30. AZACITIDINE [Suspect]
     Active Substance: AZACITIDINE
     Dosage: DOSE DESCRIPTION : 137 MG?FORM: INJECTION
     Route: 058
     Dates: end: 20230127
  31. AZACITIDINE [Suspect]
     Active Substance: AZACITIDINE
     Dosage: DOSE DESCRIPTION : 140 MG?FORM: INJECTION
     Route: 058
     Dates: end: 20230103
  32. AZACITIDINE [Suspect]
     Active Substance: AZACITIDINE
     Dosage: FORM: INJECTION
     Route: 048
     Dates: start: 20230718, end: 20230721
  33. AZACITIDINE [Suspect]
     Active Substance: AZACITIDINE
     Dosage: DOSE DESCRIPTION : 137 MG?FORM: INJECTION
     Route: 058
     Dates: end: 20230201
  34. AZACITIDINE [Suspect]
     Active Substance: AZACITIDINE
     Dosage: FORM: INJECTION
     Route: 048
     Dates: end: 20230419
  35. AZACITIDINE [Suspect]
     Active Substance: AZACITIDINE
     Dosage: FORM: INJECTION
     Route: 048
     Dates: start: 20230725, end: 20230725
  36. AZACITIDINE [Suspect]
     Active Substance: AZACITIDINE
     Dosage: FORM: INJECTION
     Route: 048
     Dates: start: 20230619, end: 20230623
  37. AZACITIDINE [Suspect]
     Active Substance: AZACITIDINE
     Dosage: FORM: INJECTION
     Route: 048
     Dates: start: 20230828, end: 20230829
  38. AZACITIDINE [Suspect]
     Active Substance: AZACITIDINE
     Dosage: DOSE DESCRIPTION : 137 MG?FORM: INJECTION
     Route: 058
     Dates: end: 20230202
  39. AZACITIDINE [Suspect]
     Active Substance: AZACITIDINE
     Dosage: DOSE DESCRIPTION : 140 MG?FORM: INJECTION
     Route: 058
     Dates: end: 20230101
  40. AZACITIDINE [Suspect]
     Active Substance: AZACITIDINE
     Dosage: FORM: INJECTION
     Route: 048
     Dates: end: 20230523
  41. AZACITIDINE [Suspect]
     Active Substance: AZACITIDINE
     Dosage: DOSE DESCRIPTION : 137 MG?FORM: INJECTION
     Route: 058
     Dates: end: 20230131
  42. AZACITIDINE [Suspect]
     Active Substance: AZACITIDINE
     Dosage: FORM: INJECTION
     Route: 048
     Dates: end: 20230616
  43. AZACITIDINE [Suspect]
     Active Substance: AZACITIDINE
     Dosage: 140 MG?PFT-22010?ROA-20066000?FORM: INJECTION
     Route: 058
     Dates: start: 20230102, end: 20230102
  44. AZACITIDINE [Suspect]
     Active Substance: AZACITIDINE
     Dosage: 140 MG?PFT-22010?ROA-20066000?FORM: INJECTION
     Route: 058
     Dates: start: 20221231, end: 20221231
  45. AZACITIDINE [Suspect]
     Active Substance: AZACITIDINE
     Dosage: 137 MG?PFT-22010?ROA-20066000?FORM: INJECTION
     Route: 058
     Dates: start: 20230129, end: 20230129
  46. AZACITIDINE [Suspect]
     Active Substance: AZACITIDINE
     Dosage: 140 MG?PFT-22010?ROA-20066000?FORM: INJECTION
     Route: 058
     Dates: start: 20230103, end: 20230103
  47. AZACITIDINE [Suspect]
     Active Substance: AZACITIDINE
     Dosage: 140 MG?PFT-22010?ROA-20066000?FORM: INJECTION
     Route: 058
     Dates: start: 20230101, end: 20230101
  48. AZACITIDINE [Suspect]
     Active Substance: AZACITIDINE
     Dosage: 137 MG?PFT-22010?ROA-20066000?FORM: INJECTION
     Route: 058
     Dates: start: 20230128, end: 20230128
  49. AZACITIDINE [Suspect]
     Active Substance: AZACITIDINE
     Dosage: 137 MG?PFT-22010?ROA-20066000?FORM: INJECTION
     Route: 058
     Dates: start: 20230130, end: 20230130
  50. AZACITIDINE [Suspect]
     Active Substance: AZACITIDINE
     Dosage: 140 MG?PFT-22010?ROA-20066000?FORM: INJECTION
     Route: 058
     Dates: start: 20230105, end: 20230105
  51. AZACITIDINE [Suspect]
     Active Substance: AZACITIDINE
     Dosage: 137 MG?PFT-22010?ROA-20066000?FORM: INJECTION
     Route: 058
     Dates: start: 20230127, end: 20230127
  52. AZACITIDINE [Suspect]
     Active Substance: AZACITIDINE
     Dosage: 140 MG?PFT-22010?ROA-20066000?FORM: INJECTION
     Route: 058
     Dates: start: 20230104, end: 20230104
  53. AZACITIDINE [Suspect]
     Active Substance: AZACITIDINE
     Dosage: 137 MG?PFT-22010?ROA-20066000?FORM: INJECTION
     Route: 058
     Dates: start: 20230131, end: 20230131
  54. AZACITIDINE [Suspect]
     Active Substance: AZACITIDINE
     Dosage: 137 MG?PFT-22010?ROA-20066000?FORM: INJECTION
     Route: 058
     Dates: start: 20230201, end: 20230201
  55. AZACITIDINE [Suspect]
     Active Substance: AZACITIDINE
     Dosage: 140 MG?PFT-22010?ROA-20066000?FORM: INJECTION
     Route: 058
     Dates: start: 20221230, end: 20221230
  56. AZACITIDINE [Suspect]
     Active Substance: AZACITIDINE
     Dosage: 137 MG?FORM: INJECTION
     Route: 058
     Dates: start: 20230202, end: 20230202
  57. ACETAMINOPHEN\CAFFEINE\PROPYPHENAZONE [Suspect]
     Active Substance: ACETAMINOPHEN\CAFFEINE\PROPYPHENAZONE
     Indication: Product used for unknown indication
     Route: 042
  58. ACETAMINOPHEN\CAFFEINE\PROPYPHENAZONE [Suspect]
     Active Substance: ACETAMINOPHEN\CAFFEINE\PROPYPHENAZONE
     Indication: Product used for unknown indication
     Dosage: DOSE DESCRIPTION : 1 G
     Route: 042
  59. MIRTAZAPINE [Concomitant]
     Active Substance: MIRTAZAPINE
     Indication: Product used for unknown indication
     Dosage: DOSE DESCRIPTION : UNK??DRUG STILL BEING ADMINISTERED
  60. CIPRALEX [Concomitant]
     Active Substance: ESCITALOPRAM OXALATE
     Indication: Product used for unknown indication
     Dosage: UNK?BDF-0096?DOSE DESCRIPTION : UNK
     Dates: start: 20230108, end: 20230208
  61. CANDESARTAN [Concomitant]
     Active Substance: CANDESARTAN
     Indication: Product used for unknown indication
     Dosage: DOSE DESCRIPTION : UNK?DRUG STILL BEING ADMINISTERED?FORM: UNKNOWN
  62. CANDESARTAN [Concomitant]
     Active Substance: CANDESARTAN
     Dosage: UNK?BDF-0096
     Dates: start: 20221104
  63. GLANDOMED [Concomitant]
     Indication: Product used for unknown indication
     Dosage: UNK?BDF-0096?DOSE DESCRIPTION : UNK
     Dates: start: 20230108, end: 20230208
  64. ENOXAPARIN [Concomitant]
     Active Substance: ENOXAPARIN
     Indication: Product used for unknown indication
     Dosage: UNK?BDF-0096?DOSE DESCRIPTION : UNK
     Dates: start: 20230109, end: 20230208
  65. POSACONAZOLE [Concomitant]
     Active Substance: POSACONAZOLE
     Indication: Product used for unknown indication
     Dosage: DOSE DESCRIPTION : UNK
  66. POSACONAZOLE [Concomitant]
     Active Substance: POSACONAZOLE
     Dosage: UNK?BDF-0096
     Dates: start: 20221102
  67. ESCITALOPRAM [Concomitant]
     Active Substance: ESCITALOPRAM OXALATE
     Indication: Product used for unknown indication
     Dosage: UNK?BDF-0096?DOSE DESCRIPTION : UNK
  68. AMOXICILLIN\CLAVULANIC ACID [Concomitant]
     Active Substance: AMOXICILLIN\CLAVULANIC ACID
     Indication: Product used for unknown indication
     Dosage: UNK?BDF-0096?DOSE DESCRIPTION : UNK
     Dates: start: 20221212, end: 20221217

REACTIONS (2)
  - Thrombocytopenia [Recovered/Resolved]
  - Febrile neutropenia [Recovered/Resolved]

NARRATIVE: CASE EVENT DATE: 20230101
